FAERS Safety Report 8231889-6 (Version None)
Quarter: 2012Q1

REPORT INFORMATION
  Report Type: 
  Country: None (occurrence: None)
  Receive Date: 20120323
  Receipt Date: 20120313
  Transmission Date: 20120608
  Serious: Yes (Death)
  Sender: FDA-Public Use
  Company Number: US-ROCHE-1034531

PATIENT
  Sex: Male

DRUGS (10)
  1. RITUXAN [Suspect]
     Indication: PRODUCT USED FOR UNKNOWN INDICATION
     Route: 042
     Dates: start: 20061218, end: 20070814
  2. COREG [Concomitant]
     Dosage: HALF TAB DAILY
     Route: 048
  3. MULTIVITAMINS W IRON + ZINC [Concomitant]
     Dosage: 1 TAB DAILY
     Route: 048
  4. PREVACID [Concomitant]
     Route: 048
  5. ZAROXOLYN [Concomitant]
     Route: 048
  6. POTASSIUM [Concomitant]
     Route: 048
  7. SENOKOT [Concomitant]
     Dosage: 1 TAB DAILY
     Route: 048
  8. PROZAC [Concomitant]
     Route: 048
  9. PREDNISONE TAB [Concomitant]
     Route: 048
  10. LASIX [Concomitant]
     Route: 048

REACTIONS (2)
  - CORONARY ARTERY DISEASE [None]
  - CARDIAC FAILURE CONGESTIVE [None]
